FAERS Safety Report 8281426-5 (Version None)
Quarter: 2012Q1

REPORT INFORMATION
  Report Type: 
  Country: None (occurrence: None)
  Receive Date: 20120316
  Receipt Date: 20100617
  Transmission Date: 20120608
  Serious: Yes (Other)
  Sender: FDA-Public Use
  Company Number: PHHY2010US39919

PATIENT
  Sex: Female

DRUGS (2)
  1. AMLODIPINE [Concomitant]
  2. TEKTURNA [Suspect]
     Dosage: 300 MG

REACTIONS (2)
  - LIP SWELLING [None]
  - PRURITUS [None]
